FAERS Safety Report 7776277 (Version 7)
Quarter: 2012Q4

REPORT INFORMATION
  Report Type: 
  Country: US (occurrence: US)
  Receive Date: 20110127
  Receipt Date: 20121031
  Transmission Date: 20130627
  Serious: Yes (Hospitalization, Other)
  Sender: FDA-Public Use
  Company Number: US-ROCHE-734436

PATIENT
  Sex: Female
  Weight: 61.2 kg

DRUGS (2)
  1. ACCUTANE [Suspect]
     Indication: ACNE
     Route: 065
     Dates: start: 2006, end: 2007
  2. ACCUTANE [Suspect]
     Route: 065

REACTIONS (7)
  - Crohn^s disease [Unknown]
  - Colitis [Unknown]
  - Inflammatory bowel disease [Unknown]
  - Intestinal obstruction [Unknown]
  - Depression [Unknown]
  - High density lipoprotein decreased [Unknown]
  - Upper respiratory tract infection [Unknown]
